FAERS Safety Report 23601612 (Version 1)
Quarter: 2024Q1

REPORT INFORMATION
  Report Type: Report from Study
  Country: GB (occurrence: GB)
  Receive Date: 20240306
  Receipt Date: 20240306
  Transmission Date: 20240410
  Serious: Yes (Other)
  Sender: FDA-Public Use
  Company Number: GB-SANDOZ-SDZ2023GB067045

PATIENT
  Sex: Female

DRUGS (1)
  1. HYRIMOZ [Suspect]
     Active Substance: ADALIMUMAB-ADAZ
     Indication: Behcet^s syndrome
     Dosage: 40 MG, Q2W
     Route: 058
     Dates: start: 20240209

REACTIONS (4)
  - Behcet^s syndrome [Unknown]
  - Disease recurrence [Unknown]
  - Limb deformity [Unknown]
  - Device dispensing error [Unknown]
